FAERS Safety Report 5099258-8 (Version None)
Quarter: 2006Q3

REPORT INFORMATION
  Report Type: 
  Country: None (occurrence: None)
  Receive Date: 20060731
  Receipt Date: 20060127
  Transmission Date: 20061208
  Serious: Yes (Other)
  Sender: FDA-Public Use
  Company Number: US-2006-001659

PATIENT
  Age: 36 Year
  Sex: Female
  Weight: 53.5 kg

DRUGS (3)
  1. MAGNEVIST [Suspect]
     Indication: NUCLEAR MAGNETIC RESONANCE IMAGING
     Dosage: 20 ML, 1 DOSE, INTRAVENOUS
     Route: 042
     Dates: start: 20060118, end: 20060118
  2. PREDNISONE TAB [Concomitant]
  3. DIPHENHYDRAMINE HCL [Concomitant]

REACTIONS (3)
  - EYE SWELLING [None]
  - NAUSEA [None]
  - THROAT TIGHTNESS [None]
